FAERS Safety Report 17260003 (Version 2)
Quarter: 2020Q1

REPORT INFORMATION
  Report Type: Report from Study
  Country: IT (occurrence: IT)
  Receive Date: 20200111
  Receipt Date: 20200327
  Transmission Date: 20200409
  Serious: Yes (Other)
  Sender: FDA-Public Use
  Company Number: IT-ACCORD-169359

PATIENT
  Age: 69 Year
  Sex: Female

DRUGS (4)
  1. ENDOXAN BAXTER [Suspect]
     Active Substance: CYCLOPHOSPHAMIDE
     Indication: BREAST CANCER
     Route: 042
     Dates: start: 20191023, end: 20191220
  2. DECADRON [Concomitant]
     Active Substance: DEXAMETHASONE
     Dosage: STRENGTH: 8 MG / 2 ML,1 VIAL OF 2 ML
  3. EPIRUBICIN [Suspect]
     Active Substance: EPIRUBICIN
     Indication: BREAST CANCER
     Route: 042
     Dates: start: 20191023, end: 20191220
  4. FLUOROURACIL. [Suspect]
     Active Substance: FLUOROURACIL
     Indication: BREAST CANCER
     Route: 042
     Dates: start: 20191023, end: 20191223

REACTIONS (9)
  - Alopecia [Unknown]
  - Dry skin [Unknown]
  - Constipation [Unknown]
  - Asthenia [Unknown]
  - Leukopenia [Unknown]
  - Dry mouth [Unknown]
  - Paraesthesia [Unknown]
  - Gastrooesophageal reflux disease [Unknown]
  - Dysgeusia [Unknown]

NARRATIVE: CASE EVENT DATE: 20191123
